FAERS Safety Report 5919467-2 (Version None)
Quarter: 2008Q4

REPORT INFORMATION
  Report Type: 
  Country: None (occurrence: None)
  Receive Date: 20081015
  Receipt Date: 20081009
  Transmission Date: 20090506
  Serious: Yes (Other)
  Sender: FDA-Public Use
  Company Number: PHEH2008US09075

PATIENT
  Sex: Female

DRUGS (1)
  1. VIVELLE-DOT [Suspect]
     Indication: HORMONE LEVEL ABNORMAL
     Dosage: .05 MG, UNK
     Route: 062

REACTIONS (2)
  - CONVULSION [None]
  - HORMONE LEVEL ABNORMAL [None]
